FAERS Safety Report 20981014 (Version 1)
Quarter: 2022Q2

REPORT INFORMATION
  Report Type: Spontaneous
  Country: IT (occurrence: IT)
  Receive Date: 20220620
  Receipt Date: 20220620
  Transmission Date: 20220721
  Serious: Yes (Hospitalization, Other)
  Sender: FDA-Public Use
  Company Number: CLT-IT-2022-0015-266813

PATIENT
  Age: 70 Year
  Sex: Female

DRUGS (1)
  1. LINEZOLID [Suspect]
     Active Substance: LINEZOLID
     Indication: Postoperative wound infection

REACTIONS (4)
  - Thrombocytopenia [Unknown]
  - Blood lactic acid increased [Recovered/Resolved]
  - Drug level increased [Recovered/Resolved]
  - Toxicity to various agents [Unknown]
